FAERS Safety Report 7436895-7 (Version None)
Quarter: 2011Q2

REPORT INFORMATION
  Report Type: 
  Country: None (occurrence: None)
  Receive Date: 20110426
  Receipt Date: 20101217
  Transmission Date: 20111010
  Serious: Yes (Hospitalization, Other)
  Sender: FDA-Public Use
  Company Number: US-BAYER-200944106NA

PATIENT
  Age: 17 Year
  Sex: Female
  Weight: 64 kg

DRUGS (12)
  1. YASMIN [Suspect]
     Indication: PREMENSTRUAL SYNDROME
     Route: 048
     Dates: start: 20010201, end: 20080101
  2. MICROGESTIN FE 1.5/30 [Concomitant]
  3. MICRONOR [Concomitant]
  4. YASMIN [Suspect]
     Indication: ACNE
  5. FLEXERIL [Concomitant]
  6. ATIVAN [Concomitant]
     Indication: ANXIETY
     Dosage: ABOUT 1 YEAR
  7. ADVAIR DISKUS 100/50 [Concomitant]
     Indication: PRODUCT USED FOR UNKNOWN INDICATION
  8. PAROXETINE HCL [Concomitant]
     Indication: ANXIETY
     Dosage: ABOUT 1 YEAR
  9. MONONESSA-28 [Concomitant]
  10. LORAZEPAM [Concomitant]
  11. ASCORBIC ACID [Concomitant]
     Indication: PRODUCT USED FOR UNKNOWN INDICATION
  12. SOMA [Concomitant]

REACTIONS (4)
  - THROMBOSIS [None]
  - COAGULOPATHY [None]
  - MYOCARDIAL INFARCTION [None]
  - ANXIETY [None]
